FAERS Safety Report 5592752-2 (Version None)
Quarter: 2008Q1

REPORT INFORMATION
  Report Type: 
  Country: None (occurrence: None)
  Receive Date: 20080116
  Receipt Date: 20080111
  Transmission Date: 20080703
  Serious: Yes (Life-Threatening, Disabling, Other)
  Sender: FDA-Public Use
  Company Number: DE-BAYER-200710486BBE

PATIENT
  Age: 2 Year
  Sex: Male

DRUGS (20)
  1. HELIXATE [Suspect]
     Indication: FACTOR VIII DEFICIENCY
     Route: 042
     Dates: start: 20061023, end: 20061023
  2. HELIXATE [Suspect]
     Route: 042
     Dates: start: 20070108, end: 20070110
  3. HELIXATE [Suspect]
     Route: 042
     Dates: start: 20070216, end: 20070630
  4. HELIXATE [Suspect]
     Route: 042
     Dates: start: 20070511, end: 20070630
  5. HELIXATE [Suspect]
     Route: 042
     Dates: start: 20061023, end: 20070420
  6. HELIXATE [Suspect]
     Route: 042
     Dates: start: 20070116, end: 20070601
  7. HELIXATE [Suspect]
     Route: 042
     Dates: start: 20070322, end: 20070615
  8. HELIXATE [Suspect]
     Route: 042
     Dates: start: 20061023
  9. HELIXATE [Suspect]
     Route: 042
     Dates: start: 20070711, end: 20070711
  10. HELIXATE [Suspect]
     Route: 042
     Dates: start: 20070713, end: 20070713
  11. HELIXATE [Suspect]
     Route: 042
     Dates: start: 20070713
  12. HELIXATE [Suspect]
     Route: 042
     Dates: start: 20070108, end: 20070110
  13. HELIXATE [Suspect]
     Route: 042
     Dates: start: 20070216, end: 20070630
  14. HELIXATE [Suspect]
     Route: 042
     Dates: start: 20070216, end: 20070630
  15. HELIXATE [Suspect]
     Route: 042
     Dates: start: 20070201, end: 20070630
  16. HELIXATE [Suspect]
     Route: 042
     Dates: start: 20070704, end: 20070723
  17. HELIXATE [Suspect]
     Route: 042
     Dates: start: 20070723
  18. HELIXATE [Suspect]
     Route: 042
     Dates: start: 20070723
  19. HELIXATE [Suspect]
     Route: 042
     Dates: start: 20070723
  20. HELIXATE [Suspect]
     Route: 042
     Dates: start: 20070723

REACTIONS (2)
  - FACTOR VIII INHIBITION [None]
  - INJECTION SITE EXTRAVASATION [None]
